FAERS Safety Report 21345211 (Version 5)
Quarter: 2022Q4

REPORT INFORMATION
  Report Type: Report from Study
  Country: CO (occurrence: CO)
  Receive Date: 20220916
  Receipt Date: 20221223
  Transmission Date: 20230113
  Serious: Yes (Hospitalization)
  Sender: FDA-Public Use
  Company Number: CO-AMRYT PHARMACEUTICALS DAC-AEGR005996

PATIENT

DRUGS (7)
  1. MYALEPT [Suspect]
     Active Substance: METRELEPTIN
     Indication: Congenital generalised lipodystrophy
     Dosage: 5 MILLIGRAM, QD
     Route: 058
     Dates: start: 20210323, end: 20220816
  2. MYALEPT [Suspect]
     Active Substance: METRELEPTIN
     Dosage: 5 MILLIGRAM
     Route: 058
     Dates: start: 20210323, end: 20220922
  3. MYALEPT [Suspect]
     Active Substance: METRELEPTIN
     Dosage: 5 MILLIGRAM
     Route: 058
     Dates: start: 20210323, end: 20221203
  4. INSULIN LISPRO [Concomitant]
     Active Substance: INSULIN LISPRO
     Indication: Diabetes mellitus
     Dosage: 36 UNITS, TID
     Route: 058
     Dates: end: 20220922
  5. INSULIN LISPRO [Concomitant]
     Active Substance: INSULIN LISPRO
     Dosage: 45 UNITS, TID (3 TIMES A DAY)
     Route: 058
  6. LANTUS [Concomitant]
     Active Substance: INSULIN GLARGINE
     Indication: Diabetes mellitus
     Dosage: 55 UNITS, BID (1 IN MORNING AND 1 AT NIGHT)
     Route: 058
     Dates: start: 20220817, end: 20220817
  7. ASPIRIN [Concomitant]
     Active Substance: ASPIRIN
     Indication: Product used for unknown indication
     Dosage: 500 MILLIGRAM, SINGLE

REACTIONS (8)
  - Vomiting [Unknown]
  - Diarrhoea [Unknown]
  - Asthenia [Recovered/Resolved]
  - Malaise [Unknown]
  - Nausea [Unknown]
  - Product supply issue [Unknown]
  - Therapy interrupted [Unknown]
  - Insurance issue [Unknown]
